FAERS Safety Report 4509699-2 (Version None)
Quarter: 2004Q4

REPORT INFORMATION
  Report Type: 
  Country: None (occurrence: None)
  Receive Date: 20041124
  Receipt Date: 20041115
  Transmission Date: 20050328
  Serious: Yes (Other)
  Sender: FDA-Public Use
  Company Number: US-JNJFOC-20041103956

PATIENT
  Sex: Female

DRUGS (4)
  1. REMICADE [Suspect]
     Dosage: MOST RECENT INFUSION
     Route: 042
     Dates: start: 20030101
  2. REMICADE [Suspect]
     Route: 042
     Dates: start: 20030101
  3. METHOTREXATE [Concomitant]
  4. BLOOD PRESSURE MEDS [Concomitant]

REACTIONS (1)
  - GALLBLADDER CANCER [None]
